FAERS Safety Report 23876352 (Version 1)
Quarter: 2024Q2

REPORT INFORMATION
  Report Type: Spontaneous
  Country: US (occurrence: US)
  Receive Date: 20240520
  Receipt Date: 20240520
  Transmission Date: 20240716
  Serious: No
  Sender: FDA-Public Use
  Company Number: US-CIPLA LTD.-2024US02607

PATIENT

DRUGS (3)
  1. ALBUTEROL [Suspect]
     Active Substance: ALBUTEROL
     Indication: Asthma
     Dosage: 90 MICROGRAM, PRN
     Dates: start: 202312
  2. ALBUTEROL [Suspect]
     Active Substance: ALBUTEROL
     Dosage: 90 MICROGRAM, PRN
     Dates: start: 202312
  3. FLOVENT [Concomitant]
     Active Substance: FLUTICASONE PROPIONATE
     Indication: Asthma
     Dosage: 2 PUFFS TWICE A DAY, BID, INHALER
     Route: 065

REACTIONS (2)
  - Product prescribing issue [Unknown]
  - Device delivery system issue [Unknown]

NARRATIVE: CASE EVENT DATE: 20231201
